FAERS Safety Report 8904710 (Version 1)
Quarter: 2012Q4

REPORT INFORMATION
  Report Type: 
  Country: DE (occurrence: DE)
  Receive Date: 20121113
  Receipt Date: 20121113
  Transmission Date: 20130627
  Serious: Yes (Death)
  Sender: FDA-Public Use
  Company Number: PHHY2012DE103787

PATIENT
  Age: 67 Year
  Sex: Male

DRUGS (4)
  1. CICLOSPORIN [Suspect]
     Indication: PROPHYLAXIS AGAINST GRAFT VERSUS HOST DISEASE
  2. CAMPATH [Concomitant]
     Indication: PROPHYLAXIS AGAINST GRAFT VERSUS HOST DISEASE
  3. THIOTEPA [Concomitant]
     Indication: SURGICAL PRECONDITIONING
  4. FLUDARABINE [Concomitant]
     Indication: SURGICAL PRECONDITIONING

REACTIONS (1)
  - Infection [Fatal]
